FAERS Safety Report 10152999 (Version 1)
Quarter: 2014Q2

REPORT INFORMATION
  Report Type: Spontaneous
  Country: US (occurrence: US)
  Receive Date: 20140505
  Receipt Date: 20140505
  Transmission Date: 20141212
  Serious: No
  Sender: FDA-Public Use
  Company Number: US-TEVA-479850USA

PATIENT
  Age: 22 Year
  Sex: Female
  Weight: 66.74 kg

DRUGS (1)
  1. PLAN B ONE-STEP [Suspect]
     Indication: POST COITAL CONTRACEPTION
     Dosage: 1.5 MILLIGRAM DAILY;
     Route: 048
     Dates: start: 20140401, end: 20140401

REACTIONS (3)
  - Muscle spasms [Recovered/Resolved]
  - Menstruation irregular [Recovered/Resolved]
  - Nausea [Recovered/Resolved]
